FAERS Safety Report 4913383-0 (Version None)
Quarter: 2006Q1

REPORT INFORMATION
  Report Type: 
  Country: None (occurrence: None)
  Receive Date: 20060210
  Receipt Date: 20060201
  Transmission Date: 20060701
  Serious: Yes (Other)
  Sender: FDA-Public Use
  Company Number: B0409321A

PATIENT
  Sex: Female

DRUGS (7)
  1. PAXIL [Suspect]
     Indication: DEPRESSION
     Dosage: 20 MG, ORAL
     Route: 048
     Dates: start: 20000926, end: 20010213
  2. DICLOFENAC SODIUM [Suspect]
  3. ETHANOL (FORMULATION UNKNOWN) (ALCOHOL) [Suspect]
  4. ACETAMINOPHEN [Suspect]
  5. ZOLPIDEM TARTRATE [Suspect]
     Indication: INSOMNIA
     Dosage: 5 MG, ORAL
     Route: 048
     Dates: start: 20010103, end: 20010213
  6. RANITIDINE HYDROCHLORIDE [Concomitant]
  7. GAVISON [Concomitant]

REACTIONS (9)
  - AFFECTIVE DISORDER [None]
  - BEREAVEMENT [None]
  - CARDIO-RESPIRATORY ARREST [None]
  - CONVULSION [None]
  - INTENTIONAL OVERDOSE [None]
  - MULTIPLE DRUG OVERDOSE INTENTIONAL [None]
  - PSYCHIATRIC SYMPTOM [None]
  - SUICIDE ATTEMPT [None]
  - VISUAL FIELD DEFECT [None]
